FAERS Safety Report 7658742-0 (Version None)
Quarter: 2011Q3

REPORT INFORMATION
  Report Type: 
  Country: None (occurrence: None)
  Receive Date: 20110805
  Receipt Date: 20110727
  Transmission Date: 20111222
  Serious: Yes (Hospitalization)
  Sender: FDA-Public Use
  Company Number: JP-NOVOPROD-332701

PATIENT

DRUGS (2)
  1. VICTOZA [Suspect]
     Indication: PRODUCT USED FOR UNKNOWN INDICATION
     Dosage: UNK
     Route: 065
     Dates: start: 20110401
  2. VICTOZA [Suspect]
     Dosage: 0.9 MG, QD
     Route: 065
     Dates: start: 20110701

REACTIONS (1)
  - PANCREATITIS ACUTE [None]
